FAERS Safety Report 5289053-9 (Version None)
Quarter: 2007Q2

REPORT INFORMATION
  Report Type: 
  Country: None (occurrence: None)
  Receive Date: 20070406
  Receipt Date: 20070329
  Transmission Date: 20071010
  Serious: Yes (Other)
  Sender: FDA-Public Use
  Company Number: KR-PFIZER INC-2007026129

PATIENT
  Sex: Male

DRUGS (1)
  1. VIAGRA [Suspect]
     Route: 048
     Dates: start: 20000101, end: 20060101

REACTIONS (2)
  - ABDOMINAL DISCOMFORT [None]
  - GASTRIC CANCER [None]
